FAERS Safety Report 7097112-3 (Version None)
Quarter: 2010Q4

REPORT INFORMATION
  Report Type: 
  Country: None (occurrence: None)
  Receive Date: 20101025
  Receipt Date: 20101021
  Transmission Date: 20110411
  Serious: Yes (Hospitalization, Disabling, Other)
  Sender: FDA-Public Use
  Company Number: 2010PROUSA00066

PATIENT
  Age: 92 Year
  Sex: Male

DRUGS (7)
  1. PROVENGE [Suspect]
     Indication: PROSTATE CANCER METASTATIC
     Dosage: 250 ML, SINGLE, INTRAVENOUS
     Route: 042
     Dates: start: 20100716, end: 20100716
  2. PROVENGE [Suspect]
     Dosage: 250 ML, SINGLE, INTRAVENOUS
     Route: 042
     Dates: start: 20100730, end: 20100730
  3. PROVENGE [Suspect]
     Dosage: 250 ML, SINGLE, INTRAVENOUS
     Route: 042
     Dates: start: 20100813, end: 20100813
  4. LORAZEPAM [Concomitant]
  5. PREDNISONE TAB [Concomitant]
  6. ASPIRIN [Concomitant]
  7. MULTIVITAMIN /00831701/ (VITAMINS NOS) [Concomitant]

REACTIONS (2)
  - FATIGUE [None]
  - SYNCOPE [None]
